FAERS Safety Report 17945175 (Version 3)
Quarter: 2021Q2

REPORT INFORMATION
  Report Type: Report from Study
  Country: KR (occurrence: KR)
  Receive Date: 20200625
  Receipt Date: 20210514
  Transmission Date: 20210717
  Serious: Yes (Hospitalization, Other)
  Sender: FDA-Public Use
  Company Number: KR-EISAI MEDICAL RESEARCH-EC-2020-076423

PATIENT
  Age: 78 Year
  Sex: Male
  Weight: 70 kg

DRUGS (15)
  1. LOPMIN [Concomitant]
     Indication: PROPHYLAXIS
     Dosage: 1CAP
     Route: 048
     Dates: start: 20200122
  2. LIVACT GRAN [Concomitant]
     Indication: PROPHYLAXIS
     Route: 048
     Dates: start: 20200122
  3. LANSTON LFDT [Concomitant]
     Active Substance: LANSOPRAZOLE
     Indication: PROPHYLAXIS
     Dosage: 1TAB
     Route: 048
     Dates: start: 20200122
  4. ALDACTONE [Concomitant]
     Active Substance: SPIRONOLACTONE
     Indication: PROPHYLAXIS
     Route: 048
     Dates: start: 20200122
  5. CENTRUM ADVANCE [Concomitant]
     Active Substance: VITAMINS
     Indication: PROPHYLAXIS
     Dosage: 1 TAB
     Route: 048
     Dates: start: 20200122
  6. DUPHALAC?EASY SYR [Concomitant]
     Active Substance: LACTULOSE
     Indication: PROPHYLAXIS
     Dosage: 1PACK
     Route: 048
     Dates: start: 20200205
  7. ACTIQ [Concomitant]
     Active Substance: FENTANYL CITRATE
     Indication: PROPHYLAXIS
     Route: 048
     Dates: start: 20200413
  8. TASNA [Concomitant]
     Indication: PROPHYLAXIS
     Route: 048
     Dates: start: 20200418
  9. LENVIMA [Suspect]
     Active Substance: LENVATINIB
     Indication: HEPATOCELLULAR CARCINOMA
     Route: 048
     Dates: start: 20200122, end: 20200319
  10. SYNERJET [Concomitant]
     Indication: PROPHYLAXIS
     Dosage: 1TAB
     Route: 048
     Dates: start: 20200413
  11. LIPITOR [Concomitant]
     Active Substance: ATORVASTATIN CALCIUM
     Indication: DIABETES MELLITUS
     Route: 048
     Dates: start: 20200416
  12. POLYBUTINE SR [Concomitant]
     Indication: CONSTIPATION
     Route: 048
     Dates: start: 20200205
  13. LASIX [Concomitant]
     Active Substance: FUROSEMIDE
     Indication: PROPHYLAXIS
     Dosage: 1TAB
     Route: 048
     Dates: start: 20200122
  14. DAEWON MEGESTROL ES [Concomitant]
     Indication: PROPHYLAXIS
     Dosage: 1PACK
     Route: 048
     Dates: start: 20200304
  15. DUROGESIC D?TRANS [Concomitant]
     Active Substance: FENTANYL
     Indication: PROPHYLAXIS
     Dosage: 50MCG/H21CM2 1PATCH
     Route: 062
     Dates: start: 20200413

REACTIONS (5)
  - Abdominal pain [Recovered/Resolved]
  - Hyperkalaemia [Recovered/Resolved]
  - Abdominal pain upper [Recovered/Resolved]
  - Acidosis [Recovered/Resolved]
  - Oedema [Not Recovered/Not Resolved]

NARRATIVE: CASE EVENT DATE: 202001
